FAERS Safety Report 7435084-X (Version None)
Quarter: 2011Q2

REPORT INFORMATION
  Report Type: 
  Country: None (occurrence: None)
  Receive Date: 20110425
  Receipt Date: 20110414
  Transmission Date: 20111010
  Serious: Yes (Hospitalization)
  Sender: FDA-Public Use
  Company Number: PHHO2009FR14773

PATIENT
  Sex: Female
  Weight: 57 kg

DRUGS (8)
  1. DOMPERIDONE [Concomitant]
  2. EUPHYTOSE [Concomitant]
     Indication: AGGRESSION
     Dosage: 3, PER DAY
     Route: 048
     Dates: start: 20090605
  3. IODINE [Concomitant]
  4. EXELON [Suspect]
     Indication: DEMENTIA ALZHEIMER'S TYPE
     Dosage: NO TREATMENT
  5. BLINDED NO TREATMENT RECEIVED [Suspect]
     Indication: DEMENTIA ALZHEIMER'S TYPE
     Dosage: NO TREATMENT
  6. EXELON [Suspect]
     Indication: DEMENTIA ALZHEIMER'S TYPE
     Dosage: 5 CM
     Route: 062
     Dates: start: 20090901
  7. CIRKAN [Concomitant]
     Indication: VARICOSE VEIN
     Dosage: 4, PER DAY
     Route: 048
     Dates: start: 20080101
  8. LOVENOX [Concomitant]
     Indication: THROMBOSIS PROPHYLAXIS
     Dosage: 20 MG, DAILY
     Route: 058
     Dates: start: 20091022, end: 20091115

REACTIONS (10)
  - ASCITES [None]
  - ABDOMINAL PAIN LOWER [None]
  - GASTROINTESTINAL HYPERMOTILITY [None]
  - DIVERTICULITIS [None]
  - PYREXIA [None]
  - ABDOMINAL PAIN [None]
  - CONDITION AGGRAVATED [None]
  - SIGMOIDITIS [None]
  - CYST [None]
  - PAIN [None]
